FAERS Safety Report 5038747-9 (Version None)
Quarter: 2006Q2

REPORT INFORMATION
  Report Type: 
  Country: None (occurrence: None)
  Receive Date: 20060623
  Receipt Date: 20060614
  Transmission Date: 20061013
  Serious: Yes (Hospitalization)
  Sender: FDA-Public Use
  Company Number: HQWYE258819JUN06

PATIENT
  Age: 72 Year
  Sex: Male

DRUGS (2)
  1. EFFEXOR XR [Suspect]
     Dosage: SEE IMAGE
     Route: 048
     Dates: end: 20060612
  2. EFFEXOR XR [Suspect]
     Dosage: SEE IMAGE
     Route: 048
     Dates: start: 20060614, end: 20060614

REACTIONS (7)
  - ACCIDENTAL OVERDOSE [None]
  - DIZZINESS [None]
  - DRUG DOSE OMISSION [None]
  - HEADACHE [None]
  - INCORRECT DOSE ADMINISTERED [None]
  - NAUSEA [None]
  - NONSPECIFIC REACTION [None]
